FAERS Safety Report 18512481 (Version 3)
Quarter: 2020Q4

REPORT INFORMATION
  Report Type: Spontaneous
  Country: US (occurrence: US)
  Receive Date: 20201117
  Receipt Date: 20201231
  Transmission Date: 20210114
  Serious: Yes (Hospitalization, Other)
  Sender: FDA-Public Use
  Company Number: US-TEVA-2020-US-1850061

PATIENT
  Age: 57 Year
  Sex: Female

DRUGS (14)
  1. HYDROCHLOROTHIAZIDE /VALSARTAN AUROBINDO/ACETRIS [Suspect]
     Active Substance: HYDROCHLOROTHIAZIDE\VALSARTAN
     Indication: HYPERTENSION
     Dosage: VALSARTAN 160 MG/HYDROCHLOROTHIAZIDE 25 MG
     Route: 048
     Dates: start: 20150302, end: 20161113
  2. VALSARTAN AUROBINDO/ACETRIS [Suspect]
     Active Substance: VALSARTAN
     Indication: HYPERTENSION
     Route: 065
     Dates: start: 20180803, end: 20180902
  3. CALCIUM CARBONATE/VITAMIN D [Concomitant]
     Active Substance: CALCIUM CARBONATE\VITAMIN D
     Dosage: 3 DOSAGE FORMS DAILY; CALCIUM CARBONATE 250 MG - VITAMIN D 125 UNITS
     Route: 048
  4. VALSARTAN AND HYDROCHLOROTHIAZIDE [Suspect]
     Active Substance: HYDROCHLOROTHIAZIDE\VALSARTAN
     Indication: HYPERTENSION
     Dosage: VALSARTAN 160 MG/HYDROCHLOROTHIAZIDE 25 MG TAB
     Route: 048
  5. HYDROCHLOROTHIAZIDE /VALSARTAN AUROBINDO/ACETRIS [Suspect]
     Active Substance: HYDROCHLOROTHIAZIDE\VALSARTAN
     Dosage: VALSARTAN 160 MG/HYDROCHLOROTHIAZIDE 25 MG
     Route: 048
     Dates: start: 20161111, end: 20170108
  6. METFORMIN [Concomitant]
     Active Substance: METFORMIN HYDROCHLORIDE
     Indication: DIABETES MELLITUS
  7. VALSARTAN W/HYDROCHLOROTHIAZIDE TEVA [Suspect]
     Active Substance: HYDROCHLOROTHIAZIDE\VALSARTAN
     Indication: HYPERTENSION
     Dosage: 1 DOSAGE FORMS DAILY; VALSARTAN 160 MG/HYDROCHLOROTHIAZIDE 25 MG
     Route: 048
     Dates: start: 20140317, end: 20150303
  8. OMEPRAZOLE. [Concomitant]
     Active Substance: OMEPRAZOLE
     Dosage: 40 MILLIGRAM DAILY;
     Route: 048
  9. VALSARTAN AND HYDROCHLOROTHIAZIDE [Suspect]
     Active Substance: HYDROCHLOROTHIAZIDE\VALSARTAN
     Indication: HYPERTENSION
     Dosage: VALSARTAN 160 MG/HYDROCHLOROTHIAZIDE 25 MG TAB
     Route: 048
  10. VALSARTAN AUROBINDO/ACETRIS [Suspect]
     Active Substance: VALSARTAN
     Route: 065
     Dates: start: 20180904, end: 20190228
  11. ATORVASTATIN [Concomitant]
     Active Substance: ATORVASTATIN
     Dosage: 10 MILLIGRAM DAILY;
     Route: 048
  12. INDOMETHACIN. [Concomitant]
     Active Substance: INDOMETHACIN
     Dosage: 75 MILLIGRAM DAILY;
     Route: 048
  13. HYDROCHLOROTHIAZIDE /VALSARTAN AUROBINDO/ACETRIS [Suspect]
     Active Substance: HYDROCHLOROTHIAZIDE\VALSARTAN
     Dosage: VALSARTAN 160 MG/HYDROCHLOROTHIAZIDE 25 MG
     Route: 048
     Dates: start: 20170208, end: 20180717
  14. INSULIN [Concomitant]
     Active Substance: INSULIN NOS
     Indication: DIABETES MELLITUS

REACTIONS (1)
  - Pancreatic carcinoma metastatic [Not Recovered/Not Resolved]
